FAERS Safety Report 8140775-1 (Version None)
Quarter: 2012Q1

REPORT INFORMATION
  Report Type: 
  Country: None (occurrence: None)
  Receive Date: 20120216
  Receipt Date: 20120206
  Transmission Date: 20120608
  Serious: Yes (Hospitalization)
  Sender: FDA-Public Use
  Company Number: US-JNJFOC-20120204729

PATIENT
  Sex: Female
  Weight: 113.4 kg

DRUGS (9)
  1. REMICADE [Suspect]
     Indication: ANKYLOSING SPONDYLITIS
     Dosage: DOSE: 9 VIALS EVERY 5 WEEKS
     Route: 042
     Dates: start: 20110902, end: 20111219
  2. REMICADE [Suspect]
     Dosage: DOSE: 8 VIALS EVERY 6 WEEKS
     Route: 042
     Dates: start: 20060101, end: 20100101
  3. REMICADE [Suspect]
     Indication: CROHN'S DISEASE
     Dosage: DOSE: 8 VIALS EVERY 6 WEEKS
     Route: 042
     Dates: start: 20060101, end: 20100101
  4. REMICADE [Suspect]
     Dosage: DOSE: 8 VIALS EVERY 6 WEEKS
     Route: 042
     Dates: start: 20100401, end: 20110902
  5. REMICADE [Suspect]
     Dosage: DOSE: 8 VIALS EVERY 6 WEEKS
     Route: 042
     Dates: start: 20100401, end: 20110902
  6. REMICADE [Suspect]
     Indication: PSORIASIS
     Dosage: DOSE: 8 VIALS EVERY 6 WEEKS
     Route: 042
     Dates: start: 20100401, end: 20110902
  7. REMICADE [Suspect]
     Dosage: DOSE: 9 VIALS EVERY 5 WEEKS
     Route: 042
     Dates: start: 20110902, end: 20111219
  8. REMICADE [Suspect]
     Dosage: DOSE: 9 VIALS EVERY 5 WEEKS
     Route: 042
     Dates: start: 20110902, end: 20111219
  9. REMICADE [Suspect]
     Dosage: DOSE: 8 VIALS EVERY 6 WEEKS
     Route: 042
     Dates: start: 20060101, end: 20100101

REACTIONS (6)
  - DRUG INEFFECTIVE [None]
  - JOINT SWELLING [None]
  - MALAISE [None]
  - ARTHRALGIA [None]
  - THYROID CANCER [None]
  - CROHN'S DISEASE [None]
